FAERS Safety Report 12621036 (Version 3)
Quarter: 2016Q4

REPORT INFORMATION
  Report Type: Spontaneous
  Country: GB (occurrence: GB)
  Receive Date: 20160804
  Receipt Date: 20161129
  Transmission Date: 20170207
  Serious: Yes (Other)
  Sender: FDA-Public Use
  Company Number: GB-ELI_LILLY_AND_COMPANY-GB201601007248

PATIENT
  Age: 82 Year
  Sex: Female

DRUGS (35)
  1. HUMALOG MIX50/50 [Suspect]
     Active Substance: INSULIN LISPRO
     Indication: TYPE 2 DIABETES MELLITUS
     Dosage: UNK UNK, TID
     Route: 065
  2. MACROGOL COMP [Concomitant]
  3. HUMALOG MIX50/50 [Suspect]
     Active Substance: INSULIN LISPRO
     Indication: TYPE 2 DIABETES MELLITUS
     Dosage: UNK UNK, TID
     Route: 065
  4. HUMALOG MIX50/50 [Suspect]
     Active Substance: INSULIN LISPRO
     Dosage: 15 U, EACH EVENING
     Route: 065
     Dates: start: 20161109
  5. BISOPROLOL [Concomitant]
     Active Substance: BISOPROLOL
     Dosage: 7.5 MG, QD
     Route: 065
  6. CLOPIDOGREL [Concomitant]
     Active Substance: CLOPIDOGREL BISULFATE
  7. COLECALCIFEROL [Concomitant]
     Active Substance: CHOLECALCIFEROL
     Dosage: 800 U, UNKNOWN
  8. CALCIUM CARBONATE W/SODIUM FLUORIDE [Concomitant]
  9. OMACOR [Concomitant]
     Active Substance: OMEGA-3-ACID ETHYL ESTERS
  10. PARACETAMOL [Concomitant]
     Active Substance: ACETAMINOPHEN
  11. FORCEVAL                           /07405301/ [Concomitant]
     Active Substance: FOLIC ACID\IRON\MINERALS\VITAMINS
  12. HUMALOG MIX50/50 [Suspect]
     Active Substance: INSULIN LISPRO
     Dosage: UNK UNK, TID
     Route: 065
  13. BUMETANIDE. [Concomitant]
     Active Substance: BUMETANIDE
     Dosage: 1 UG, EACH MORNING
     Route: 065
  14. LINAGLIPTIN [Concomitant]
     Active Substance: LINAGLIPTIN
     Dosage: UNK
  15. MEFIX [Concomitant]
  16. PIROXICAM. [Concomitant]
     Active Substance: PIROXICAM
  17. HUMALOG MIX50/50 [Suspect]
     Active Substance: INSULIN LISPRO
     Dosage: 15 U, EACH EVENING
     Route: 065
     Dates: start: 20161109
  18. BUPRENORPHINE. [Concomitant]
     Active Substance: BUPRENORPHINE
     Dosage: 20 MG/HR
     Route: 065
  19. COCODAMOL [Concomitant]
     Active Substance: ACETAMINOPHEN\CODEINE PHOSPHATE
  20. GLYCERYL TRINITRATE [Concomitant]
     Active Substance: NITROGLYCERIN
  21. HYLO TEAR [Concomitant]
  22. LIDOCAINE. [Concomitant]
     Active Substance: LIDOCAINE
  23. VITA POS [Concomitant]
     Active Substance: VITAMIN A PALMITATE
  24. HUMALOG MIX50/50 [Suspect]
     Active Substance: INSULIN LISPRO
     Dosage: 20 U, EACH MORNING
     Route: 065
     Dates: start: 20161109
  25. DIFFLAM [Concomitant]
     Active Substance: BENZYDAMINE HYDROCHLORIDE
  26. DORZOLAMIDE AND TIMOLOL [Concomitant]
     Active Substance: DORZOLAMIDE\TIMOLOL
  27. GLUCOGEL [Concomitant]
  28. PREDNISOLONE. [Concomitant]
     Active Substance: PREDNISOLONE
     Dosage: 5 UG, QD
  29. EPADERM [Concomitant]
     Active Substance: MINERAL OIL\PETROLATUM\WAX, EMULSIFYING
  30. HUMALOG MIX50/50 [Suspect]
     Active Substance: INSULIN LISPRO
     Dosage: 20 U, EACH MORNING
     Route: 065
     Dates: start: 20161109
  31. CANDESARTAN [Concomitant]
     Active Substance: CANDESARTAN
  32. EZETIMIBE. [Concomitant]
     Active Substance: EZETIMIBE
  33. BIMATOPROST. [Concomitant]
     Active Substance: BIMATOPROST
     Dosage: UNK
  34. LID CARE [Concomitant]
  35. PANTOPRAZOLE [Concomitant]
     Active Substance: PANTOPRAZOLE SODIUM

REACTIONS (18)
  - Fall [Unknown]
  - Diabetes mellitus [Unknown]
  - Blood glucose decreased [Unknown]
  - Thirst [Unknown]
  - Blood glucose increased [Unknown]
  - Drug ineffective [Unknown]
  - End stage renal disease [Unknown]
  - Weight decreased [Unknown]
  - Pneumonia [Unknown]
  - Visual acuity reduced [Unknown]
  - Blood glucose abnormal [Not Recovered/Not Resolved]
  - Eye pain [Recovered/Resolved]
  - Decreased appetite [Unknown]
  - Fatigue [Unknown]
  - Blood glucose increased [Unknown]
  - Blood glucose increased [Unknown]
  - Blood glucose increased [Unknown]
  - Somnolence [Unknown]

NARRATIVE: CASE EVENT DATE: 20160721
